FAERS Safety Report 9154334 (Version 1)
Quarter: 2013Q1

REPORT INFORMATION
  Report Type: Spontaneous
  Country: US (occurrence: US)
  Receive Date: 20130311
  Receipt Date: 20130311
  Transmission Date: 20140127
  Serious: No
  Sender: FDA-Public Use
  Company Number: US-PFIZER INC-2013079755

PATIENT
  Sex: Female
  Weight: 84.35 kg

DRUGS (25)
  1. NEURONTIN [Suspect]
     Indication: NEUROPATHY PERIPHERAL
     Dosage: 300 MG, 1X/DAY
  2. NEURONTIN [Suspect]
     Indication: RESTLESS LEGS SYNDROME
     Dosage: 300 MG, 3X/DAY
  3. NEURONTIN [Suspect]
     Dosage: 300 MG, 2X/DAY
  4. PREVACID [Concomitant]
     Indication: GASTROOESOPHAGEAL REFLUX DISEASE
     Dosage: 30 MG, 2X/DAY
  5. PREVACID [Concomitant]
     Indication: HIATUS HERNIA
  6. LEVOTHYROXINE [Concomitant]
     Indication: HYPOTHYROIDISM
     Dosage: 0.05 MG, 1X/DAY
  7. NORVASC [Concomitant]
     Indication: HYPERTENSION
     Dosage: 10 MG, 1X/DAY
  8. LOSARTAN [Concomitant]
     Indication: HYPERTENSION
     Dosage: 100 MG, 1X/DAY
  9. TOPROL XL [Concomitant]
     Indication: HYPERTENSION
     Dosage: 75 MG, 1X/DAY
  10. PLAVIX [Concomitant]
     Indication: OPTIC NERVE DISORDER
     Dosage: 75 MG, 1X/DAY
  11. ASPIRIN [Concomitant]
     Indication: CAROTID ARTERY DISEASE
     Dosage: 81 MG, 1X/DAY
  12. XALATAN [Concomitant]
     Dosage: 1 GTT, IN EACH EYE 1X/DAY
     Route: 047
  13. FRESHKOTE [Concomitant]
     Indication: DRY EYE
     Dosage: 1 GTT, IN EACH EYE 3X/DAY AS NEEDED
     Route: 047
  14. REFRESH [Concomitant]
     Indication: DRY EYE
     Dosage: UNK, 1X/DAY
     Route: 047
  15. DICLOFENAC [Concomitant]
     Indication: EYE PAIN
     Dosage: 1 GTT, IN EACH EYE AS NEEDED
     Route: 047
  16. CENTRUM SILVER [Concomitant]
     Dosage: UNK, 1X/DAY
  17. CLARITIN [Concomitant]
     Dosage: UNK, 1X/DAY
  18. LASIX [Concomitant]
     Indication: DIURETIC THERAPY
     Dosage: 20 MG, 1X/DAY
  19. K-DUR [Concomitant]
     Dosage: UNK
  20. LIPITOR [Concomitant]
     Dosage: UNK
  21. GAVISCON [Concomitant]
     Dosage: UNK
  22. TYLENOL [Concomitant]
     Dosage: UNK
  23. FIBRE, DIETARY [Concomitant]
     Dosage: UNK
  24. TRAMADOL [Concomitant]
     Dosage: UNK
  25. VITAMIN D3 [Concomitant]
     Dosage: UNK, 3X/DAY

REACTIONS (1)
  - Somnolence [Not Recovered/Not Resolved]
